FAERS Safety Report 23154874 (Version 1)
Quarter: 2023Q4

REPORT INFORMATION
  Report Type: Spontaneous
  Country: US (occurrence: US)
  Receive Date: 20231107
  Receipt Date: 20231107
  Transmission Date: 20240109
  Serious: Yes (Other)
  Sender: FDA-Public Use
  Company Number: US-TEVA-2023-US-2942146

PATIENT
  Age: 84 Year
  Sex: Female

DRUGS (5)
  1. PROAIR HFA [Suspect]
     Active Substance: ALBUTEROL SULFATE
     Indication: Product used for unknown indication
     Dosage: 2 PUFFS IN THE MORNING, WHEN SHE GETS UP, AND 2 PUFFS AT NIGHT
     Route: 065
     Dates: start: 201904
  2. PROAIR HFA [Suspect]
     Active Substance: ALBUTEROL SULFATE
  3. ALBUTEROL SULFATE [Interacting]
     Active Substance: ALBUTEROL SULFATE
     Indication: Product used for unknown indication
     Dosage: FOR 4 WEEKS
     Route: 065
  4. ALBUTEROL SULFATE [Interacting]
     Active Substance: ALBUTEROL SULFATE
  5. BREO ELLIPTA [Concomitant]
     Active Substance: FLUTICASONE FUROATE\VILANTEROL TRIFENATATE
     Indication: Product used for unknown indication
     Dosage: ONCE A DAY
     Route: 065

REACTIONS (10)
  - Pneumonia aspiration [Unknown]
  - Dependence on oxygen therapy [Unknown]
  - COVID-19 [Unknown]
  - Dizziness [Unknown]
  - Oxygen saturation decreased [Unknown]
  - Insomnia [Unknown]
  - Tremor [Unknown]
  - Arthropathy [Unknown]
  - Adverse drug reaction [Unknown]
  - Adverse event [Unknown]
